FAERS Safety Report 5210978-4 (Version None)
Quarter: 2007Q1

REPORT INFORMATION
  Report Type: 
  Country: None (occurrence: None)
  Receive Date: 20070117
  Receipt Date: 20070108
  Transmission Date: 20070707
  Serious: Yes (Hospitalization)
  Sender: FDA-Public Use
  Company Number: US-PFIZER INC-2007002519

PATIENT
  Sex: Male
  Weight: 102.5 kg

DRUGS (7)
  1. ZOLOFT [Suspect]
     Indication: DEPRESSION
     Route: 048
     Dates: start: 20060801, end: 20060918
  2. PEGINTERFERON ALFA-2B [Suspect]
     Indication: HEPATITIS C
     Route: 058
  3. REBETOL [Suspect]
     Indication: HEPATITIS C
     Route: 048
  4. DIPHENHYDRAMINE HCL [Concomitant]
  5. VITAMIN CAP [Concomitant]
  6. TRAZODONE HCL [Concomitant]
  7. VARDENAFIL [Concomitant]

REACTIONS (3)
  - DRUG TOXICITY [None]
  - GASTROENTERITIS VIRAL [None]
  - WHITE BLOOD CELL COUNT DECREASED [None]
